FAERS Safety Report 6577134-9 (Version None)
Quarter: 2010Q1

REPORT INFORMATION
  Report Type: 
  Country: None (occurrence: None)
  Receive Date: 20100210
  Receipt Date: 20100203
  Transmission Date: 20100710
  Serious: Yes (Hospitalization)
  Sender: FDA-Public Use
  Company Number: BR-ABBOTT-10P-020-0624246-00

PATIENT
  Sex: Female
  Weight: 106 kg

DRUGS (4)
  1. HUMIRA [Suspect]
     Indication: RHEUMATOID ARTHRITIS
     Route: 058
     Dates: start: 20090101, end: 20090401
  2. HUMIRA [Suspect]
     Route: 058
     Dates: start: 20090610
  3. PRELONE [Concomitant]
     Indication: PAIN
     Dosage: 20MG OR 5MG, 1 EVERY 24 HRS
     Route: 048
     Dates: end: 20091217
  4. CALCORT [Concomitant]
     Indication: PAIN
     Route: 048
     Dates: end: 20091217

REACTIONS (5)
  - DENGUE FEVER [None]
  - LIVER FUNCTION TEST ABNORMAL [None]
  - RASH MACULAR [None]
  - SKIN EXFOLIATION [None]
  - SWELLING [None]
